FAERS Safety Report 10349869 (Version 2)
Quarter: 2014Q3

REPORT INFORMATION
  Report Type: Spontaneous
  Country: DE (occurrence: DE)
  Receive Date: 20140730
  Receipt Date: 20140812
  Transmission Date: 20150326
  Serious: Yes (Hospitalization, Other)
  Sender: FDA-Public Use
  Company Number: DE-ASTELLAS-2014US009129

PATIENT
  Age: 73 Year
  Sex: Male

DRUGS (1)
  1. AMPHOTERICIN B. [Suspect]
     Active Substance: AMPHOTERICIN B
     Indication: PROPHYLAXIS
     Route: 042
     Dates: start: 20140624, end: 20140717

REACTIONS (8)
  - Drug ineffective for unapproved indication [Unknown]
  - Aspergillus infection [Not Recovered/Not Resolved]
  - Fungal infection [Unknown]
  - Pulmonary mycosis [Unknown]
  - Lung infiltration [Not Recovered/Not Resolved]
  - Respiratory fatigue [Unknown]
  - Lung consolidation [Unknown]
  - Off label use [Unknown]

NARRATIVE: CASE EVENT DATE: 20140715
